FAERS Safety Report 12825239 (Version 1)
Quarter: 2016Q4

REPORT INFORMATION
  Report Type: Spontaneous
  Country: BR (occurrence: BR)
  Receive Date: 20161007
  Receipt Date: 20161007
  Transmission Date: 20170207
  Serious: Yes (Other)
  Sender: FDA-Public Use
  Company Number: BR-009507513-1610BRA000412

PATIENT
  Age: 29 Year
  Sex: Female
  Weight: 65 kg

DRUGS (2)
  1. NUVARING [Suspect]
     Active Substance: ETHINYL ESTRADIOL\ETONOGESTREL
     Indication: CONTRACEPTION
     Dosage: 1 RING, 3 WEEKS USE AND ONE WEEK FOR FREE INTERVAL
     Route: 067
     Dates: start: 2011
  2. NUVARING [Suspect]
     Active Substance: ETHINYL ESTRADIOL\ETONOGESTREL
     Dosage: 1 RING, 3 WEEKS USE AND ONE WEEK FOR FREE INTERVAL
     Route: 067
     Dates: start: 20160928

REACTIONS (2)
  - Maternal exposure before pregnancy [Recovered/Resolved]
  - Caesarean section [Recovered/Resolved]

NARRATIVE: CASE EVENT DATE: 2011
